FAERS Safety Report 17958128 (Version 1)
Quarter: 2020Q2

REPORT INFORMATION
  Report Type: Spontaneous
  Country: PK (occurrence: PK)
  Receive Date: 20200629
  Receipt Date: 20200629
  Transmission Date: 20200714
  Serious: Yes (Death)
  Sender: FDA-Public Use
  Company Number: PK-CYCLE PHARMACEUTICALS LTD-2020-CYC-000011

PATIENT
  Age: 16 Month
  Sex: Male
  Weight: 10 kg

DRUGS (4)
  1. NITISINONE [Suspect]
     Active Substance: NITISINONE
     Dosage: 5 MG, UNK
     Route: 048
  2. NITISINONE [Suspect]
     Active Substance: NITISINONE
     Dosage: 2 MG, UNK
     Route: 048
  3. NITISINONE [Suspect]
     Active Substance: NITISINONE
     Indication: TYROSINAEMIA
     Dosage: 5 MG, UNK
     Route: 048
  4. NITISINONE [Suspect]
     Active Substance: NITISINONE
     Indication: TYROSINAEMIA
     Dosage: 2 MG, UNK
     Route: 048

REACTIONS (1)
  - Death [Fatal]
